FAERS Safety Report 5631852-5 (Version None)
Quarter: 2008Q1

REPORT INFORMATION
  Report Type: 
  Country: None (occurrence: None)
  Receive Date: 20080220
  Receipt Date: 20080212
  Transmission Date: 20080703
  Serious: Yes (Other)
  Sender: FDA-Public Use
  Company Number: DE-BAYER-200810844GPV

PATIENT
  Age: 45 Year
  Sex: Female
  Weight: 42 kg

DRUGS (3)
  1. AVELOX [Suspect]
     Indication: CAMPYLOBACTER GASTROENTERITIS
     Dosage: TOTAL DAILY DOSE: 800 MG  UNIT DOSE: 400 MG
     Route: 048
  2. BUDENOFALK [Concomitant]
     Indication: ENTERITIS
     Dosage: TOTAL DAILY DOSE: 9 MG  UNIT DOSE: 3 MG
     Route: 048
  3. MYKUNDEX [NYSTATIN] [Concomitant]
     Indication: APHTHOUS STOMATITIS
     Dosage: TOTAL DAILY DOSE: 8 ML  UNIT DOSE: 2 ML
     Route: 048

REACTIONS (8)
  - ATAXIA [None]
  - DIZZINESS [None]
  - GAIT DISTURBANCE [None]
  - MALAISE [None]
  - MUSCULAR WEAKNESS [None]
  - PARAESTHESIA [None]
  - SOMNOLENCE [None]
  - TACHYCARDIA [None]
